FAERS Safety Report 9592341 (Version 3)
Quarter: 2013Q4

REPORT INFORMATION
  Report Type: Not Available
  Country: US (occurrence: US)
  Receive Date: 20131004
  Receipt Date: 20131120
  Transmission Date: 20140711
  Serious: Yes (Life-Threatening, Hospitalization)
  Sender: FDA-Public Use
  Company Number: US-LUPIN PHARMACEUTICALS INC.-E2B_00001308

PATIENT
  Age: 49 Year
  Sex: Female
  Weight: 118.95 kg

DRUGS (4)
  1. LISINOPRIL AND HYDROCHLOROTHIAZIDE TABLETS USP 10MG/12.5 MG [Suspect]
     Indication: HYPERTENSION
     Dates: start: 2010, end: 2013
  2. OMEPRAZOLE (PRILOSEC) [Concomitant]
     Indication: PRODUCT USED FOR UNKNOWN INDICATION
     Route: 065
  3. DONEPEZIL HYDROCHLORIDE (ARICEPT) [Concomitant]
     Indication: PRODUCT USED FOR UNKNOWN INDICATION
     Route: 065
  4. RABEPRAZOLE (RABICIP) [Concomitant]
     Indication: PRODUCT USED FOR UNKNOWN INDICATION
     Route: 065

REACTIONS (4)
  - Laryngospasm [Recovered/Resolved]
  - Angioedema [Recovered/Resolved]
  - Drug hypersensitivity [Recovered/Resolved]
  - Product substitution issue [Recovered/Resolved]
